FAERS Safety Report 13829344 (Version 4)
Quarter: 2017Q3

REPORT INFORMATION
  Report Type: Spontaneous
  Country: GB (occurrence: GB)
  Receive Date: 20170803
  Receipt Date: 20170919
  Transmission Date: 20171127
  Serious: Yes (Hospitalization, Other)
  Sender: FDA-Public Use
  Company Number: GB-PFIZER INC-2017331832

PATIENT
  Sex: Male

DRUGS (2)
  1. PREGABALIN. [Suspect]
     Active Substance: PREGABALIN
     Dosage: UNK
  2. PREGABALIN. [Suspect]
     Active Substance: PREGABALIN
     Dosage: DOSE WAS DOUBLED

REACTIONS (4)
  - Dropped head syndrome [Unknown]
  - Malaise [Unknown]
  - Dyspnoea [Unknown]
  - Nervous system disorder [Unknown]
